FAERS Safety Report 14495771 (Version 3)
Quarter: 2018Q3

REPORT INFORMATION
  Report Type: Report from Study
  Country: BR (occurrence: BR)
  Receive Date: 20180207
  Receipt Date: 20180724
  Transmission Date: 20181010
  Serious: Yes (Life-Threatening, Other)
  Sender: FDA-Public Use
  Company Number: BR-ROCHE-2064614

PATIENT
  Age: 52 Year
  Sex: Female
  Weight: 68 kg

DRUGS (3)
  1. XOLAIR [Suspect]
     Active Substance: OMALIZUMAB
     Indication: URTICARIA CHRONIC
     Route: 058
     Dates: start: 20170912
  2. XOLAIR [Suspect]
     Active Substance: OMALIZUMAB
     Dosage: UNK
     Route: 058
     Dates: start: 20171011
  3. XOLAIR [Suspect]
     Active Substance: OMALIZUMAB
     Route: 058
     Dates: start: 20180201

REACTIONS (16)
  - Blister [Not Recovered/Not Resolved]
  - Feeling of despair [Unknown]
  - Weight increased [Unknown]
  - Skin plaque [Recovering/Resolving]
  - Depressed mood [Unknown]
  - Pain [Unknown]
  - Asthenia [Unknown]
  - Swelling [Not Recovered/Not Resolved]
  - Apparent death [Unknown]
  - Panic attack [Unknown]
  - Malaise [Not Recovered/Not Resolved]
  - Pyrexia [Unknown]
  - Urticaria [Recovering/Resolving]
  - Burning sensation [Not Recovered/Not Resolved]
  - Feeling abnormal [Unknown]
  - Pruritus [Not Recovered/Not Resolved]

NARRATIVE: CASE EVENT DATE: 20180716
